FAERS Safety Report 6821066-5 (Version None)
Quarter: 2010Q3

REPORT INFORMATION
  Report Type: 
  Country: None (occurrence: None)
  Receive Date: 20100707
  Receipt Date: 20071226
  Transmission Date: 20110219
  Serious: Yes (Other)
  Sender: FDA-Public Use
  Company Number: US-PFIZER INC-2007072271

PATIENT
  Sex: Female

DRUGS (3)
  1. ZOLOFT [Suspect]
     Indication: ANXIETY
     Dates: end: 20070827
  2. ZOLOFT [Suspect]
     Indication: DEPRESSION
  3. ZOLOFT [Suspect]
     Indication: BIPOLAR DISORDER

REACTIONS (4)
  - BRUXISM [None]
  - MYALGIA [None]
  - ORAL PAIN [None]
  - TEMPOROMANDIBULAR JOINT SYNDROME [None]
